FAERS Safety Report 20325181 (Version 12)
Quarter: 2022Q2

REPORT INFORMATION
  Report Type: Spontaneous
  Country: US (occurrence: US)
  Receive Date: 20220112
  Receipt Date: 20220519
  Transmission Date: 20220721
  Serious: No
  Sender: FDA-Public Use
  Company Number: US-NOVARTISTESTPH-NVSC2022US005376

PATIENT
  Age: 64 Year
  Sex: Female

DRUGS (8)
  1. RECLAST [Suspect]
     Active Substance: ZOLEDRONIC ACID
     Indication: Product used for unknown indication
     Dosage: UNK UNK, ONCE/SINGLE
     Route: 065
     Dates: start: 2019
  2. RECLAST [Suspect]
     Active Substance: ZOLEDRONIC ACID
     Dosage: UNK, UNKNOWN (8 YEARS AGO)
     Route: 065
  3. RECLAST [Suspect]
     Active Substance: ZOLEDRONIC ACID
     Dosage: 1 MG, ONCE/SINGLE
     Route: 065
     Dates: start: 20200120, end: 20200120
  4. METOPROLOL [Concomitant]
     Active Substance: METOPROLOL
     Indication: Product used for unknown indication
     Dosage: UNK
     Route: 065
  5. LISINOPRIL [Concomitant]
     Active Substance: LISINOPRIL
     Indication: Product used for unknown indication
     Dosage: UNK
     Route: 065
  6. ARMOUR THYROID [Concomitant]
     Active Substance: THYROID, PORCINE
     Indication: Product used for unknown indication
     Dosage: UNK
     Route: 065
  7. VITAMIN A [Concomitant]
     Active Substance: VITAMIN A
     Indication: Product used for unknown indication
     Dosage: UNK
     Route: 065
  8. CALCIUM [Concomitant]
     Active Substance: CALCIUM
     Indication: Product used for unknown indication
     Dosage: UNK
     Route: 065

REACTIONS (13)
  - Tooth disorder [Unknown]
  - Bone disorder [Unknown]
  - Bone loss [Unknown]
  - Noninfective gingivitis [Unknown]
  - Oropharyngeal plaque [Unknown]
  - Mastication disorder [Unknown]
  - Oral discomfort [Unknown]
  - Toothache [Unknown]
  - Hyperaesthesia teeth [Unknown]
  - Masticatory pain [Unknown]
  - Blood glucose increased [Unknown]
  - Dry eye [Unknown]
  - Eating disorder [Unknown]

NARRATIVE: CASE EVENT DATE: 20220110
